FAERS Safety Report 12238380 (Version 5)
Quarter: 2016Q3

REPORT INFORMATION
  Report Type: Spontaneous
  Country: JP (occurrence: JP)
  Receive Date: 20160405
  Receipt Date: 20160705
  Transmission Date: 20161109
  Serious: Yes (Death, Other)
  Sender: FDA-Public Use
  Company Number: JP-009507513-1604JPN000656

PATIENT
  Age: 90 Year
  Sex: Female
  Weight: 43 kg

DRUGS (3)
  1. REFLEX [Concomitant]
     Active Substance: MIRTAZAPINE
     Indication: DEPRESSION
     Dosage: 15 MG, QD
     Route: 048
     Dates: start: 20151002
  2. BELSOMRA [Suspect]
     Active Substance: SUVOREXANT
     Indication: INSOMNIA
     Dosage: 15 MG, QD
     Route: 048
     Dates: start: 20160226
  3. DONEPEZIL HYDROCHLORIDE. [Concomitant]
     Active Substance: DONEPEZIL HYDROCHLORIDE
     Indication: MEMORY IMPAIRMENT
     Dosage: FORMULATION: POR, 3 MG, DIVIDED DOSE FREQUENCY UNKNOWN
     Route: 048
     Dates: start: 201512

REACTIONS (2)
  - Depression [Unknown]
  - Death [Fatal]

NARRATIVE: CASE EVENT DATE: 2016
